FAERS Safety Report 21847795 (Version 1)
Quarter: 2023Q1

REPORT INFORMATION
  Report Type: Spontaneous
  Country: FR (occurrence: FR)
  Receive Date: 20230111
  Receipt Date: 20230111
  Transmission Date: 20230417
  Serious: Yes (Other)
  Sender: FDA-Public Use
  Company Number: None

PATIENT
  Age: 4 Year
  Sex: Male
  Weight: 15 kg

DRUGS (2)
  1. VANCOMYCIN HYDROCHLORIDE [Suspect]
     Active Substance: VANCOMYCIN HYDROCHLORIDE
     Indication: Febrile bone marrow aplasia
     Dosage: 1100 MG, QD
     Route: 042
     Dates: start: 20221025, end: 20221102
  2. BACTRIM [Suspect]
     Active Substance: SULFAMETHOXAZOLE\TRIMETHOPRIM
     Indication: Antibiotic prophylaxis
     Dosage: 3 DOSAGE FORM, QW
     Route: 048
     Dates: start: 20221017, end: 20221115

REACTIONS (1)
  - Rash maculo-papular [Recovered/Resolved]

NARRATIVE: CASE EVENT DATE: 20221106
